FAERS Safety Report 5612214-3 (Version None)
Quarter: 2008Q1

REPORT INFORMATION
  Report Type: 
  Country: None (occurrence: None)
  Receive Date: 20080128
  Receipt Date: 20071030
  Transmission Date: 20080703
  Serious: Yes (Other)
  Sender: FDA-Public Use
  Company Number: 2007S1011173

PATIENT
  Age: 32 Year
  Sex: Female

DRUGS (5)
  1. FLUOXETINE [Suspect]
     Indication: DEPRESSION
     Dosage: 20 MG;ORAL
     Route: 048
     Dates: start: 20070730, end: 20070815
  2. SERTRALINE [Suspect]
     Dosage: 50 MG; ORAL
     Route: 048
     Dates: start: 20070821, end: 20070912
  3. BECLOMETHASONE DIPROPIONATE [Concomitant]
  4. CO-CODAMOL (PANADEINE CO) [Concomitant]
  5. SALBUTAMOL (SALBUTAMOL) [Concomitant]

REACTIONS (3)
  - RASH ERYTHEMATOUS [None]
  - RASH MACULO-PAPULAR [None]
  - RASH PRURITIC [None]
